FAERS Safety Report 20732824 (Version 1)
Quarter: 2022Q2

REPORT INFORMATION
  Report Type: Report from Study
  Country: US (occurrence: US)
  Receive Date: 20220420
  Receipt Date: 20220420
  Transmission Date: 20220721
  Serious: Yes (Other)
  Sender: FDA-Public Use
  Company Number: US-BRISTOL-MYERS SQUIBB COMPANY-2022-020409

PATIENT
  Age: 70 Year
  Sex: Male
  Weight: 97.522 kg

DRUGS (2)
  1. REVLIMID [Suspect]
     Active Substance: LENALIDOMIDE
     Indication: Plasma cell myeloma
     Dosage: FREQ: DAILY
     Route: 048
     Dates: start: 20170704
  2. XGEVA [Concomitant]
     Active Substance: DENOSUMAB

REACTIONS (2)
  - Necrosis [Unknown]
  - Dental discomfort [Unknown]
